FAERS Safety Report 9899715 (Version 3)
Quarter: 2015Q3

REPORT INFORMATION
  Report Type: Spontaneous
  Country: US (occurrence: US)
  Receive Date: 20140214
  Receipt Date: 20150810
  Transmission Date: 20151125
  Serious: Yes (Hospitalization)
  Sender: FDA-Public Use
  Company Number: US-GILEAD-2011-0041094

PATIENT
  Age: 58 Year
  Sex: Male

DRUGS (3)
  1. LETAIRIS [Suspect]
     Active Substance: AMBRISENTAN
     Indication: PRODUCT USED FOR UNKNOWN INDICATION
     Route: 048
     Dates: start: 20110608, end: 20110623
  2. ZEMAIRA [Concomitant]
     Active Substance: .ALPHA.1-PROTEINASE INHIBITOR HUMAN
  3. REVATIO [Suspect]
     Active Substance: SILDENAFIL CITRATE

REACTIONS (4)
  - Hypersensitivity [Unknown]
  - Swelling [Unknown]
  - Eye swelling [Unknown]
  - Dyspnoea [Unknown]
